FAERS Safety Report 8857470 (Version 2)
Quarter: 2013Q1

REPORT INFORMATION
  Report Type: Spontaneous
  Country: US (occurrence: US)
  Receive Date: 20121024
  Receipt Date: 20130125
  Transmission Date: 20140127
  Serious: Yes (Other)
  Sender: FDA-Public Use
  Company Number: US-ROCHE-790770

PATIENT
  Age: 24 Year
  Sex: Male
  Weight: 61.29 kg

DRUGS (4)
  1. ACCUTANE [Suspect]
     Indication: ACNE
     Dosage: DOSE: 20 MG DAILY
     Route: 048
     Dates: start: 20030301, end: 2004
  2. ACCUTANE [Suspect]
     Route: 048
     Dates: start: 20001106, end: 200101
  3. ACCUTANE [Suspect]
     Route: 048
  4. ACCUTANE [Suspect]
     Route: 048

REACTIONS (14)
  - Colitis ulcerative [Unknown]
  - Inflammatory bowel disease [Unknown]
  - Emotional distress [Unknown]
  - Crohn^s disease [Unknown]
  - Intestinal obstruction [Unknown]
  - Pouchitis [Unknown]
  - Peritoneal abscess [Unknown]
  - Dry skin [Unknown]
  - Lip dry [Unknown]
  - Blood triglycerides increased [Unknown]
  - Blood cholesterol increased [Unknown]
  - Low density lipoprotein increased [Unknown]
  - High density lipoprotein decreased [Unknown]
  - Dry eye [Unknown]
